FAERS Safety Report 8832326 (Version 2)
Quarter: 2012Q4

REPORT INFORMATION
  Report Type: 
  Country: PL (occurrence: PL)
  Receive Date: 20121009
  Receipt Date: 20121012
  Transmission Date: 20130627
  Serious: Yes (Death)
  Sender: FDA-Public Use
  Company Number: PL-BAXTER-2012BAX018720

PATIENT
  Age: 37 Year
  Sex: Female

DRUGS (3)
  1. DIANEAL PD4 (GLUKOZA 1,36%) ZESTAW DO DIALIZY OTRZEWNOWEJ [Suspect]
     Indication: CAPD
     Route: 033
     Dates: end: 20121001
  2. DIANEAL PD4 (GLUKOZA 3,86%) ZESTAW [Suspect]
     Indication: CAPD
     Route: 033
     Dates: end: 20121001
  3. EXTRANEAL ZESTAW DO DIALIZY OTRZEWNOWEJ [Suspect]
     Indication: CAPD
     Route: 033
     Dates: end: 20121001

REACTIONS (1)
  - Death [Fatal]
